FAERS Safety Report 9974103 (Version 1)
Quarter: 2014Q1

REPORT INFORMATION
  Report Type: Report from Study
  Country: US (occurrence: US)
  Receive Date: 20140306
  Receipt Date: 20140306
  Transmission Date: 20141002
  Serious: No
  Sender: FDA-Public Use
  Company Number: US-ABBVIE-13P-163-1155274-00

PATIENT
  Age: 38 Year
  Sex: Female

DRUGS (3)
  1. HUMIRA [Suspect]
     Indication: CROHN^S DISEASE
     Dates: start: 201307, end: 201307
  2. HUMIRA [Suspect]
     Dates: start: 201308, end: 201308
  3. HUMIRA [Suspect]
     Dates: start: 201308

REACTIONS (2)
  - Allergy to animal [Not Recovered/Not Resolved]
  - Eye swelling [Not Recovered/Not Resolved]
